FAERS Safety Report 7984590-8 (Version None)
Quarter: 2011Q4

REPORT INFORMATION
  Report Type: 
  Country: None (occurrence: None)
  Receive Date: 20111216
  Receipt Date: 20111207
  Transmission Date: 20120403
  Serious: Yes (Other)
  Sender: FDA-Public Use
  Company Number: JP-SANOFI-AVENTIS-2011SA081360

PATIENT

DRUGS (4)
  1. THERAPEUTIC RADIOPHARMACEUTICALS [Suspect]
     Indication: HEAD AND NECK CANCER
     Dosage: DOSE RANGE: 60-70 GY
     Route: 065
  2. CISPLATIN [Suspect]
     Indication: HEAD AND NECK CANCER
     Route: 065
  3. DOCETAXEL [Suspect]
     Indication: HEAD AND NECK CANCER
     Route: 065
  4. FLUOROURACIL [Suspect]
     Indication: HEAD AND NECK CANCER
     Route: 065

REACTIONS (5)
  - DERMATITIS [None]
  - TRISMUS [None]
  - MUCOSAL INFLAMMATION [None]
  - HAEMATOTOXICITY [None]
  - NAUSEA [None]
